FAERS Safety Report 8326687-9 (Version None)
Quarter: 2012Q2

REPORT INFORMATION
  Report Type: 
  Country: None (occurrence: None)
  Receive Date: 20120501
  Receipt Date: 20120423
  Transmission Date: 20120825
  Serious: Yes (Other)
  Sender: FDA-Public Use
  Company Number: US-ABBOTT-12P-163-0929901-00

PATIENT
  Sex: Female

DRUGS (1)
  1. HUMIRA [Suspect]
     Indication: RHEUMATOID ARTHRITIS
     Dates: start: 20111101

REACTIONS (6)
  - MIGRAINE [None]
  - RHEUMATOID ARTHRITIS [None]
  - FISTULA [None]
  - TOOTH ABSCESS [None]
  - TOOTH FRACTURE [None]
  - OEDEMA PERIPHERAL [None]
